FAERS Safety Report 16380657 (Version 1)
Quarter: 2019Q2

REPORT INFORMATION
  Report Type: Spontaneous
  Country: NL (occurrence: NL)
  Receive Date: 20190601
  Receipt Date: 20190601
  Transmission Date: 20190711
  Serious: Yes (Hospitalization)
  Sender: FDA-Public Use
  Company Number: NL-ACCORD-130475

PATIENT
  Age: 56 Year
  Sex: Male
  Weight: 91 kg

DRUGS (6)
  1. TOPIRAMATE. [Suspect]
     Active Substance: TOPIRAMATE
     Indication: EPILEPSY
     Dosage: 2D75MG
     Dates: start: 2000
  2. LAMOTRIGINE. [Concomitant]
     Active Substance: LAMOTRIGINE
     Dosage: 2D 250-300MG
  3. CLOBAZAM. [Concomitant]
     Active Substance: CLOBAZAM
     Dosage: 1D20MG
  4. CYANOCOBALAMIN. [Concomitant]
     Active Substance: CYANOCOBALAMIN
     Dosage: 1D1000UG
  5. BUDESONIDE. [Concomitant]
     Active Substance: BUDESONIDE
     Dosage: 2D1
  6. COLECALCIFEROL [Concomitant]
     Active Substance: CHOLECALCIFEROL
     Dosage: 1D400IE

REACTIONS (1)
  - Ureterolithiasis [Recovering/Resolving]

NARRATIVE: CASE EVENT DATE: 20190317
